FAERS Safety Report 10897325 (Version 1)
Quarter: 2015Q1

REPORT INFORMATION
  Report Type: Spontaneous
  Country: US (occurrence: None)
  Receive Date: 20150302
  Receipt Date: 20150302
  Transmission Date: 20150721
  Serious: No
  Sender: FDA-Public Use
  Company Number: None

PATIENT
  Age: 66 Year
  Sex: Male
  Weight: 71.22 kg

DRUGS (2)
  1. ABILIFY [Suspect]
     Active Substance: ARIPIPRAZOLE
     Indication: DEPRESSION
     Dosage: ONE, ONCE DAILY, TAKEN BY MOUTH
     Route: 048
  2. ABILIFY [Suspect]
     Active Substance: ARIPIPRAZOLE
     Indication: DYSPEPSIA
     Dosage: ONE, ONCE DAILY, TAKEN BY MOUTH
     Route: 048

REACTIONS (5)
  - Arthralgia [None]
  - Visual impairment [None]
  - Myalgia [None]
  - Vision blurred [None]
  - Photophobia [None]

NARRATIVE: CASE EVENT DATE: 20150227
